FAERS Safety Report 14975114 (Version 1)
Quarter: 2018Q2

REPORT INFORMATION
  Report Type: Spontaneous
  Country: TR (occurrence: TR)
  Receive Date: 20180605
  Receipt Date: 20180605
  Transmission Date: 20180711
  Serious: Yes (Hospitalization, Other)
  Sender: FDA-Public Use
  Company Number: TR-ASTRAZENECA-2018SE71443

PATIENT
  Age: 78 Year
  Sex: Male

DRUGS (1)
  1. SEROQUEL [Suspect]
     Active Substance: QUETIAPINE FUMARATE
     Indication: HALLUCINATION
     Route: 048
     Dates: start: 20180323

REACTIONS (9)
  - Acute myocardial infarction [Unknown]
  - Brain injury [Unknown]
  - Anxiety [Unknown]
  - Cardiac valve disease [Unknown]
  - Lung neoplasm malignant [Unknown]
  - Insomnia [Unknown]
  - Heart rate increased [Unknown]
  - Hallucination [Unknown]
  - Psychomotor hyperactivity [Unknown]

NARRATIVE: CASE EVENT DATE: 20180523
